FAERS Safety Report 9127791 (Version 2)
Quarter: 2013Q1

REPORT INFORMATION
  Report Type: Report from Study
  Country: DE (occurrence: DE)
  Receive Date: 20130228
  Receipt Date: 20130308
  Transmission Date: 20140127
  Serious: Yes (Hospitalization)
  Sender: FDA-Public Use
  Company Number: DE-AMGEN-DEUCT2013013670

PATIENT
  Age: 12 Year
  Sex: Female
  Weight: 59.5 kg

DRUGS (2)
  1. ETANERCEPT [Suspect]
     Indication: JUVENILE IDIOPATHIC ARTHRITIS
     Dosage: 50 MG, QWK
     Dates: start: 20120912
  2. PREDNISOLON                        /00016201/ [Concomitant]
     Indication: JUVENILE IDIOPATHIC ARTHRITIS
     Dosage: UNK
     Route: 048
     Dates: start: 20120912

REACTIONS (3)
  - Liver disorder [Recovered/Resolved]
  - Blood bilirubin increased [Recovered/Resolved]
  - Transaminases increased [Recovered/Resolved]
